FAERS Safety Report 7794872-0 (Version None)
Quarter: 2011Q4

REPORT INFORMATION
  Report Type: 
  Country: None (occurrence: None)
  Receive Date: 20111004
  Receipt Date: 20110927
  Transmission Date: 20120403
  Serious: Yes (Other)
  Sender: FDA-Public Use
  Company Number: PHEH2011US04195

PATIENT
  Sex: Male
  Weight: 23 kg

DRUGS (7)
  1. QVAR 40 [Concomitant]
     Dosage: 2 DF, BID
  2. PENICILLIN VK [Concomitant]
     Indication: ASPLENIA
     Dosage: 250 MG, BID
     Route: 048
     Dates: start: 20050810
  3. EXJADE [Suspect]
     Indication: IRON OVERLOAD
     Dosage: 500 MG, UNK
     Route: 048
     Dates: start: 20110401, end: 20110527
  4. EXJADE [Suspect]
     Dosage: 375 MG, QD
     Route: 048
     Dates: start: 20110616, end: 20110902
  5. EXJADE [Suspect]
     Dosage: 375 MG, QD
     Route: 048
     Dates: start: 20110912
  6. ALBUTEROL [Concomitant]
     Dosage: 2 DF, PRN
  7. MULTI-VITAMINS [Concomitant]
     Dosage: 1 DF, QD
     Route: 048

REACTIONS (9)
  - HYPERBILIRUBINAEMIA [None]
  - EYE PRURITUS [None]
  - EOSINOPHILIA [None]
  - LACRIMATION INCREASED [None]
  - RHINORRHOEA [None]
  - SERUM FERRITIN INCREASED [None]
  - HAEMOGLOBIN DECREASED [None]
  - HAEMATOCRIT DECREASED [None]
  - NASAL CONGESTION [None]
